FAERS Safety Report 6931552-5 (Version None)
Quarter: 2010Q3

REPORT INFORMATION
  Report Type: 
  Country: None (occurrence: None)
  Receive Date: 20100819
  Receipt Date: 20100810
  Transmission Date: 20110219
  Serious: Yes (Hospitalization)
  Sender: FDA-Public Use
  Company Number: US-JNJFOC-20100803724

PATIENT
  Sex: Female
  Weight: 56.7 kg

DRUGS (6)
  1. FENTANYL CITRATE [Suspect]
     Indication: PAIN
     Dosage: 150-200 MCG
     Route: 062
  2. FENTANYL CITRATE [Suspect]
     Route: 062
  3. FENTANYL CITRATE [Suspect]
     Route: 062
  4. PERCOCET [Concomitant]
     Indication: PAIN
     Dosage: 10/325 MG AS NEEDED
     Route: 048
  5. SOMA [Concomitant]
     Indication: PAIN
     Dosage: 1-2 DAILY AS NEEDED
     Route: 048
  6. VALIUM [Concomitant]
     Indication: PAIN
     Dosage: EVERY 6 HOURS AS NEEDED
     Route: 048

REACTIONS (8)
  - APPLICATION SITE EROSION [None]
  - APPLICATION SITE PRURITUS [None]
  - APPLICATION SITE REACTION [None]
  - DRUG ADMINISTERED AT INAPPROPRIATE SITE [None]
  - INAPPROPRIATE SCHEDULE OF DRUG ADMINISTRATION [None]
  - PNEUMONIA [None]
  - PRODUCT ADHESION ISSUE [None]
  - WRONG TECHNIQUE IN DRUG USAGE PROCESS [None]
